FAERS Safety Report 11712096 (Version 1)
Quarter: 2015Q4

REPORT INFORMATION
  Report Type: Spontaneous
  Country: US (occurrence: US)
  Receive Date: 20151104
  Receipt Date: 20151104
  Transmission Date: 20160304
  Serious: No
  Sender: FDA-Public Use
  Company Number: US-ELI_LILLY_AND_COMPANY-US201104005441

PATIENT
  Age: 82 Year

DRUGS (3)
  1. FORTEO [Suspect]
     Active Substance: TERIPARATIDE
     Indication: OSTEOPOROSIS
     Dosage: 20 UG, QD
     Dates: start: 20110412
  2. FORTEO [Suspect]
     Active Substance: TERIPARATIDE
     Dosage: 20 UG, QD
  3. AVASTIN [Concomitant]
     Active Substance: BEVACIZUMAB
     Indication: NEOVASCULAR AGE-RELATED MACULAR DEGENERATION

REACTIONS (20)
  - Heart rate increased [Unknown]
  - Blood pressure increased [Recovered/Resolved]
  - Anxiety [Not Recovered/Not Resolved]
  - Pollakiuria [Unknown]
  - Intentional product misuse [Unknown]
  - Pain in extremity [Unknown]
  - Middle insomnia [Unknown]
  - Nausea [Not Recovered/Not Resolved]
  - Eye irritation [Unknown]
  - Vision blurred [Unknown]
  - Discomfort [Unknown]
  - Arthralgia [Unknown]
  - Gingival bleeding [Unknown]
  - Confusional state [Unknown]
  - Arthritis [Unknown]
  - Back pain [Unknown]
  - Dyspnoea [Unknown]
  - Chest pain [Unknown]
  - Nervousness [Unknown]
  - Pain [Unknown]

NARRATIVE: CASE EVENT DATE: 20110412
